FAERS Safety Report 12524796 (Version 1)
Quarter: 2016Q3

REPORT INFORMATION
  Report Type: Spontaneous
  Country: US (occurrence: US)
  Receive Date: 20160704
  Receipt Date: 20160704
  Transmission Date: 20161109
  Serious: Yes (Hospitalization, Other)
  Sender: FDA-Public Use
  Company Number: US-PFIZER INC-2016324850

PATIENT
  Sex: Male

DRUGS (3)
  1. VITAMIN B1 /00056102/ [Concomitant]
     Indication: BLOOD DISORDER
     Dosage: ONCE A DAY TAKES BEFORE BED
     Route: 048
  2. LYRICA [Suspect]
     Active Substance: PREGABALIN
     Indication: NERVE INJURY
     Dosage: 100 MG, 1 IN THE MORNING AND ONE IN THE NIGHT
     Route: 048
  3. VITAMIN B1 /00056102/ [Concomitant]
     Indication: LIVER DISORDER

REACTIONS (5)
  - Hepatic cirrhosis [Unknown]
  - Internal haemorrhage [Unknown]
  - Haematemesis [Unknown]
  - Hepatitis C [Unknown]
  - Nausea [Unknown]
